FAERS Safety Report 5672824-4 (Version None)
Quarter: 2008Q2

REPORT INFORMATION
  Report Type: 
  Country: None (occurrence: None)
  Receive Date: 20080219
  Receipt Date: 20071204
  Transmission Date: 20081010
  Serious: No
  Sender: FDA-Public Use
  Company Number: TPA2007A1802

PATIENT
  Age: 61 Year
  Sex: Male
  Weight: 69.8539 kg

DRUGS (3)
  1. ROZEREM [Suspect]
     Indication: INITIAL INSOMNIA
     Dosage: 8 MG 1 IN 1 D, PER ORAL
     Route: 048
     Dates: start: 20070823
  2. ROZEREM [Suspect]
     Indication: MIDDLE INSOMNIA
     Dosage: 8 MG 1 IN 1 D, PER ORAL
     Route: 048
     Dates: start: 20070823
  3. KLONOPIN [Suspect]
     Indication: SLEEP DISORDER
     Dosage: 0.5 MGM 2 IN 1 D, PER ORAL
     Route: 048

REACTIONS (5)
  - ASTHENIA [None]
  - HANGOVER [None]
  - HEADACHE [None]
  - NAUSEA [None]
  - SOMNOLENCE [None]
